FAERS Safety Report 20762818 (Version 1)
Quarter: 2022Q2

REPORT INFORMATION
  Report Type: Spontaneous
  Country: US (occurrence: US)
  Receive Date: 20220428
  Receipt Date: 20220428
  Transmission Date: 20220721
  Serious: No
  Sender: FDA-Public Use
  Company Number: US-ELI_LILLY_AND_COMPANY-US202204012830

PATIENT
  Age: 30 Year
  Sex: Male

DRUGS (1)
  1. BAQSIMI [Suspect]
     Active Substance: GLUCAGON
     Indication: Type 1 diabetes mellitus
     Dosage: 3 MG, UNKNOWN
     Route: 065

REACTIONS (1)
  - Injection site pain [Unknown]
